FAERS Safety Report 16206613 (Version 1)
Quarter: 2019Q2

REPORT INFORMATION
  Report Type: Spontaneous
  Country: US (occurrence: US)
  Receive Date: 20190416
  Receipt Date: 20190416
  Transmission Date: 20190711
  Serious: Yes (Life-Threatening)
  Sender: FDA-Public Use
  Company Number: None

PATIENT
  Age: 74 Year
  Sex: Male
  Weight: 106.6 kg

DRUGS (1)
  1. ANDEXANET ALFA [Suspect]
     Active Substance: ANDEXANET ALFA
     Dosage: ?          OTHER FREQUENCY:ONCE;?
     Route: 040
     Dates: start: 20190404, end: 20190404

REACTIONS (1)
  - Acute myocardial infarction [None]

NARRATIVE: CASE EVENT DATE: 20190411
